FAERS Safety Report 13891209 (Version 13)
Quarter: 2019Q4

REPORT INFORMATION
  Report Type: Report from Study
  Country: US (occurrence: US)
  Receive Date: 20170822
  Receipt Date: 20191224
  Transmission Date: 20200122
  Serious: Yes (Other)
  Sender: FDA-Public Use
  Company Number: US-SA-2017SA141419

PATIENT
  Age: 50 Year
  Sex: Female

DRUGS (3)
  1. DUPILUMAB [Suspect]
     Active Substance: DUPILUMAB
     Indication: DERMATITIS ATOPIC
     Dosage: 600 MG,1X
     Route: 058
     Dates: start: 20170727, end: 20170727
  2. DUPILUMAB [Suspect]
     Active Substance: DUPILUMAB
     Indication: ECZEMA
     Dosage: 300 MG,QOW
     Route: 058
     Dates: start: 20170814
  3. DUPILUMAB [Suspect]
     Active Substance: DUPILUMAB
     Dosage: 300 MG, QOW
     Route: 058

REACTIONS (19)
  - Palpitations [Recovered/Resolved]
  - Vision blurred [Unknown]
  - Vulvovaginal mycotic infection [Unknown]
  - Rash pruritic [Unknown]
  - Cardiac flutter [Recovered/Resolved]
  - Heart rate increased [Recovered/Resolved]
  - Product dose omission [Unknown]
  - Drug ineffective [Unknown]
  - Pruritus [Not Recovered/Not Resolved]
  - Dry skin [Unknown]
  - Injection site pain [Recovered/Resolved]
  - Dermatitis atopic [Unknown]
  - Arthralgia [Not Recovered/Not Resolved]
  - Swelling [Not Recovered/Not Resolved]
  - Breast cancer [Unknown]
  - Skin exfoliation [Recovered/Resolved]
  - Back pain [Unknown]
  - Pigmentation disorder [Unknown]
  - Pain in extremity [Not Recovered/Not Resolved]

NARRATIVE: CASE EVENT DATE: 2017
